FAERS Safety Report 6640173-3 (Version None)
Quarter: 2010Q1

REPORT INFORMATION
  Report Type: 
  Country: None (occurrence: None)
  Receive Date: 20100318
  Receipt Date: 20100316
  Transmission Date: 20100710
  Serious: Yes (Hospitalization, Disabling)
  Sender: FDA-Public Use
  Company Number: DE-AMGEN-UK380811

PATIENT
  Age: 72 Year

DRUGS (14)
  1. NEULASTA [Suspect]
     Indication: BREAST CANCER
     Route: 058
     Dates: start: 20090817
  2. DOCETAXEL [Suspect]
     Route: 041
     Dates: start: 20090907
  3. EPIRUBICIN [Suspect]
     Route: 041
     Dates: start: 20090907
  4. CYCLOPHOSPHAMIDE [Suspect]
     Route: 041
     Dates: start: 20090907
  5. ACETASALICYLIC ACID [Concomitant]
     Route: 065
     Dates: start: 20091101
  6. LISINOPRIL [Concomitant]
     Route: 065
     Dates: start: 19900101
  7. TORSEMIDE [Concomitant]
     Route: 065
     Dates: start: 19990101
  8. SIMVASTATIN [Concomitant]
     Route: 065
     Dates: start: 19900101
  9. METOPROLOL TARTRATE [Concomitant]
     Route: 065
     Dates: start: 19900101
  10. PENTAERYTHRITOL TETRANITRATE [Concomitant]
     Route: 065
     Dates: start: 19981101
  11. ALLOPURINOL [Concomitant]
     Route: 065
     Dates: start: 20000101
  12. PIRACETAM [Concomitant]
     Route: 065
     Dates: start: 20040101
  13. LYRICA [Concomitant]
     Route: 065
     Dates: start: 20080101
  14. INSULIN LISPRO [Concomitant]
     Route: 065
     Dates: start: 19760101

REACTIONS (1)
  - NEUTROPENIA [None]
